FAERS Safety Report 7891383-9 (Version None)
Quarter: 2011Q4

REPORT INFORMATION
  Report Type: 
  Country: None (occurrence: None)
  Receive Date: 20111103
  Receipt Date: 20110802
  Transmission Date: 20120403
  Serious: No
  Sender: FDA-Public Use
  Company Number: US-AMGEN-USASP2011039154

PATIENT
  Sex: Female

DRUGS (2)
  1. ENBREL [Suspect]
     Indication: CONNECTIVE TISSUE DISORDER
     Dosage: 50 MG, QWK
     Dates: start: 20100701
  2. PREDNISONE [Concomitant]

REACTIONS (6)
  - RASH GENERALISED [None]
  - INJECTION SITE PAIN [None]
  - INJECTION SITE HAEMATOMA [None]
  - CONDITION AGGRAVATED [None]
  - MALAISE [None]
  - FATIGUE [None]
